FAERS Safety Report 8864263 (Version 1)
Quarter: 2012Q4

REPORT INFORMATION
  Report Type: 
  Country: US (occurrence: US)
  Receive Date: 20121024
  Receipt Date: 20121024
  Transmission Date: 20130627
  Serious: No
  Sender: FDA-Public Use
  Company Number: US-AMGEN-USASP2011066580

PATIENT
  Sex: Male

DRUGS (6)
  1. ENBREL [Suspect]
     Indication: PRODUCT USED FOR UNKNOWN INDICATION
     Dosage: 50 mg, qwk
  2. FOSAMAX [Concomitant]
     Dosage: 5 mg, UNK
  3. COLCHICINE [Concomitant]
     Dosage: 0.6 mg, UNK
  4. NAPROXEN [Concomitant]
     Dosage: 500 mg, UNK
  5. ALLOPURINOL [Concomitant]
     Dosage: 300 mg, UNK
  6. VITAMIN D /00107901/ [Concomitant]
     Dosage: 1000 IU, UNK

REACTIONS (1)
  - Injection site injury [Unknown]
